FAERS Safety Report 20034983 (Version 8)
Quarter: 2022Q2

REPORT INFORMATION
  Report Type: Spontaneous
  Country: US (occurrence: US)
  Receive Date: 20211104
  Receipt Date: 20220526
  Transmission Date: 20220721
  Serious: Yes (Death, Other)
  Sender: FDA-Public Use
  Company Number: US-PFIZER INC-2021169744

PATIENT
  Age: 97 Year
  Sex: Female

DRUGS (4)
  1. RETACRIT [Suspect]
     Active Substance: EPOETIN ALFA-EPBX
     Dosage: 40000 IU, MONTHLY (40,000 U/ML INJECT 1 ML SQ MONTHLY)
     Route: 058
  2. RETACRIT [Suspect]
     Active Substance: EPOETIN ALFA-EPBX
     Dosage: 1 ML, MONTHLY
     Route: 058
  3. RETACRIT [Suspect]
     Active Substance: EPOETIN ALFA-EPBX
     Dosage: 40,000 IU, TWICE A MONTH (INCREASING HER DOSE TO TWICE A MONTH/ EVERY 2 WEEKS)
     Route: 058
  4. RETACRIT [Suspect]
     Active Substance: EPOETIN ALFA-EPBX
     Dosage: UNK
     Route: 058
     Dates: start: 20211001

REACTIONS (5)
  - Death [Fatal]
  - Renal failure [Unknown]
  - Off label use [Unknown]
  - Lethargy [Unknown]
  - Full blood count abnormal [Unknown]
